FAERS Safety Report 17956745 (Version 1)
Quarter: 2020Q2

REPORT INFORMATION
  Report Type: Spontaneous
  Country: CN (occurrence: CN)
  Receive Date: 20200629
  Receipt Date: 20200629
  Transmission Date: 20200714
  Serious: Yes (Other)
  Sender: FDA-Public Use
  Company Number: CN-ACTELION-A-CH2020-205825

PATIENT

DRUGS (2)
  1. DOPAMINE HYCROCHLORIDE [Concomitant]
     Active Substance: DOPAMINE HYDROCHLORIDE
     Dosage: 5 MG/KG, PER MIN
     Route: 042
  2. TRACLEER [Suspect]
     Active Substance: BOSENTAN
     Indication: PULMONARY HYPERTENSION
     Dosage: 1 MG/KG
     Route: 048

REACTIONS (7)
  - Pulmonary haemorrhage [Unknown]
  - Hypotension [Unknown]
  - Platelet count decreased [Unknown]
  - Pneumonia [Unknown]
  - Anaemia [Unknown]
  - Feeding intolerance [Unknown]
  - White blood cell count decreased [Unknown]
